FAERS Safety Report 10131157 (Version 1)
Quarter: 2014Q2

REPORT INFORMATION
  Report Type: Spontaneous
  Country: US (occurrence: None)
  Receive Date: 20140425
  Receipt Date: 20140425
  Transmission Date: 20141212
  Serious: Yes (Death, Life-Threatening)
  Sender: FDA-Public Use
  Company Number: None

PATIENT
  Age: 88 Year
  Sex: Male

DRUGS (1)
  1. XARELTO [Suspect]

REACTIONS (7)
  - Hepatic enzyme increased [None]
  - Hepatic failure [None]
  - International normalised ratio increased [None]
  - Multi-organ failure [None]
  - Coagulopathy [None]
  - Encephalopathy [None]
  - Cholecystitis chronic [None]
